FAERS Safety Report 5761044-0 (Version None)
Quarter: 2008Q2

REPORT INFORMATION
  Report Type: 
  Country: None (occurrence: None)
  Receive Date: 20080606
  Receipt Date: 20080603
  Transmission Date: 20081010
  Serious: Yes (Other)
  Sender: FDA-Public Use
  Company Number: ES-ASTRAZENECA-2008AC01414

PATIENT
  Age: 44 Year
  Sex: Female

DRUGS (7)
  1. SEROQUEL [Suspect]
     Route: 048
     Dates: start: 20060101, end: 20080201
  2. EPILEXTER [Suspect]
     Indication: DEPRESSION
     Route: 048
     Dates: start: 20071201, end: 20080214
  3. PROZAC [Suspect]
     Route: 048
     Dates: start: 20060101, end: 20080201
  4. BENEXOL [Concomitant]
  5. LEGALON [Concomitant]
  6. LEVOTHROID [Concomitant]
  7. RIVOTRIL [Concomitant]

REACTIONS (1)
  - HYPERNATRAEMIA [None]
